FAERS Safety Report 12419753 (Version 1)
Quarter: 2016Q2

REPORT INFORMATION
  Report Type: Spontaneous
  Country: US (occurrence: None)
  Receive Date: 20160527
  Receipt Date: 20160527
  Transmission Date: 20160815
  Serious: No
  Sender: FDA-Public Use
  Company Number: None

PATIENT
  Age: 25 Year
  Sex: Female
  Weight: 81.65 kg

DRUGS (3)
  1. LEVOTHYROXINE. [Concomitant]
     Active Substance: LEVOTHYROXINE
  2. DULOXETINE. [Suspect]
     Active Substance: DULOXETINE
     Indication: FIBROMYALGIA
     Dosage: 30 CAPSULES AT  BEDTIME
     Route: 048
     Dates: start: 20151123, end: 20160309
  3. VITAMIN D [Concomitant]
     Active Substance: CHOLECALCIFEROL

REACTIONS (7)
  - Alanine aminotransferase increased [None]
  - Aspartate aminotransferase increased [None]
  - Myalgia [None]
  - Dizziness [None]
  - Fatigue [None]
  - Enzyme level decreased [None]
  - Drug withdrawal syndrome [None]

NARRATIVE: CASE EVENT DATE: 20160104
